FAERS Safety Report 5338471-9 (Version None)
Quarter: 2007Q2

REPORT INFORMATION
  Report Type: 
  Country: None (occurrence: None)
  Receive Date: 20070530
  Receipt Date: 20070521
  Transmission Date: 20071010
  Serious: Yes (Hospitalization)
  Sender: FDA-Public Use
  Company Number: US-ROCHE-492210

PATIENT
  Age: 54 Year
  Sex: Male
  Weight: 63 kg

DRUGS (11)
  1. MYCOPHENOLATE MOFETIL [Suspect]
     Dosage: DOSAGE FORM REPORTED AS PILL.
     Route: 048
     Dates: start: 20070118
  2. SIROLIMUS [Suspect]
     Dosage: DOSAGE FORM REPORTED AS PILL.
     Route: 048
     Dates: start: 20070125, end: 20070410
  3. SIROLIMUS [Suspect]
     Route: 048
     Dates: start: 20070412, end: 20070427
  4. PREDNISONE TAB [Suspect]
     Route: 065
     Dates: start: 20061120, end: 20070308
  5. BACTRIM DS [Concomitant]
     Dates: start: 20061120
  6. MAGNESIUM PROTEIN COMPLEX [Concomitant]
     Dates: start: 20061120
  7. VALCYTE [Concomitant]
     Dates: start: 20061201
  8. PREVACID [Concomitant]
     Dates: start: 20061120
  9. NPH ILETIN II [Concomitant]
     Dates: start: 20061201
  10. NOVOLOG [Concomitant]
     Dosage: REPORTED AS NOVOLOG INSULIN.
     Dates: start: 20061201
  11. MULTI-VITAMIN [Concomitant]
     Dates: start: 20061120

REACTIONS (1)
  - HEPATITIS C [None]
